FAERS Safety Report 7961159-2 (Version None)
Quarter: 2011Q4

REPORT INFORMATION
  Report Type: 
  Country: None (occurrence: None)
  Receive Date: 20111207
  Receipt Date: 20111130
  Transmission Date: 20120403
  Serious: Yes (Hospitalization)
  Sender: FDA-Public Use
  Company Number: FR-PFIZER INC-2011291639

PATIENT
  Age: 63 Year
  Sex: Male
  Weight: 81 kg

DRUGS (4)
  1. ATORVASTATIN CALCIUM [Concomitant]
     Dosage: 20 MG, UNK
     Route: 048
  2. TORISEL [Suspect]
     Indication: RENAL CANCER
     Dosage: 30 MG, WEEKLY
     Route: 042
     Dates: start: 20090901, end: 20100531
  3. TORISEL [Suspect]
     Indication: METASTASES TO BONE
  4. EFFEXOR [Concomitant]
     Dosage: 75 MG, UNK
     Route: 048

REACTIONS (2)
  - PYREXIA [None]
  - PNEUMOCYSTIS JIROVECI PNEUMONIA [None]
